FAERS Safety Report 21404487 (Version 3)
Quarter: 2023Q1

REPORT INFORMATION
  Report Type: Spontaneous
  Country: US (occurrence: US)
  Receive Date: 20221003
  Receipt Date: 20230101
  Transmission Date: 20230418
  Serious: Yes (Hospitalization, Other)
  Sender: FDA-Public Use
  Company Number: US-EXELIXIS-CABO-22056272

PATIENT
  Age: 66 Year
  Sex: Female
  Weight: 59.188 kg

DRUGS (3)
  1. OPDIVO [Suspect]
     Active Substance: NIVOLUMAB
     Indication: Renal cancer
  2. CABOMETYX [Suspect]
     Active Substance: CABOZANTINIB S-MALATE
     Indication: Renal cancer
     Route: 048
     Dates: start: 20211104, end: 20220822
  3. CABOMETYX [Suspect]
     Active Substance: CABOZANTINIB S-MALATE
     Route: 048
     Dates: start: 202209, end: 202209

REACTIONS (4)
  - Diarrhoea haemorrhagic [Recovering/Resolving]
  - Skin ulcer [Unknown]
  - Rash [Unknown]
  - Large intestinal haemorrhage [Unknown]

NARRATIVE: CASE EVENT DATE: 20220701
